FAERS Safety Report 8922922 (Version 4)
Quarter: 2013Q1

REPORT INFORMATION
  Report Type: Spontaneous
  Country: US (occurrence: US)
  Receive Date: 20121125
  Receipt Date: 20130326
  Transmission Date: 20140127
  Serious: Yes (Other)
  Sender: FDA-Public Use
  Company Number: US-009507513-1211USA007867

PATIENT
  Sex: Female
  Weight: 146.49 kg

DRUGS (1)
  1. IMPLANON [Suspect]
     Indication: CONTRACEPTION
     Dosage: UNK
     Route: 059
     Dates: start: 20110520

REACTIONS (10)
  - Cholecystectomy [Unknown]
  - Pelvic infection [Unknown]
  - Pain in extremity [Not Recovered/Not Resolved]
  - Metrorrhagia [Unknown]
  - Device dislocation [Unknown]
  - Device breakage [Unknown]
  - Medical device complication [Unknown]
  - Dyspareunia [Unknown]
  - Vaginal discharge [Unknown]
  - Feeling abnormal [Unknown]
